FAERS Safety Report 15821401 (Version 2)
Quarter: 2019Q1

REPORT INFORMATION
  Report Type: Spontaneous
  Country: US (occurrence: US)
  Receive Date: 20190114
  Receipt Date: 20190329
  Transmission Date: 20190417
  Serious: Yes (Hospitalization, Other)
  Sender: FDA-Public Use
  Company Number: US-BAYER-2019-008976

PATIENT
  Age: 73 Year
  Sex: Female

DRUGS (7)
  1. METHENAMINE [Concomitant]
     Active Substance: METHENAMINE
     Dosage: UNK
  2. METOPROLOL. [Concomitant]
     Active Substance: METOPROLOL
     Dosage: UNK
  3. BETASERON [Suspect]
     Active Substance: INTERFERON BETA-1B
     Indication: RELAPSING-REMITTING MULTIPLE SCLEROSIS
     Dosage: 8 MIU, QOD
     Route: 058
     Dates: start: 19950401
  4. MYLAN TOLTERODINE ER [Concomitant]
     Dosage: UNK
  5. ZETIA [Concomitant]
     Active Substance: EZETIMIBE
     Dosage: UNK
  6. BETASERON [Suspect]
     Active Substance: INTERFERON BETA-1B
     Indication: REYE^S SYNDROME
     Dosage: 0.25 MG, QOD
     Route: 058
  7. VALSARTAN HCTZ [Concomitant]
     Active Substance: HYDROCHLOROTHIAZIDE\VALSARTAN
     Dosage: UNK

REACTIONS (9)
  - Hemiparesis [Not Recovered/Not Resolved]
  - Fall [Recovered/Resolved]
  - Urinary tract infection [Not Recovered/Not Resolved]
  - Product dose omission [Recovered/Resolved]
  - Product container issue [Recovered/Resolved]
  - Product dose omission [Recovered/Resolved]
  - Tremor [Recovered/Resolved]
  - Product use in unapproved indication [None]
  - Head injury [Recovered/Resolved]

NARRATIVE: CASE EVENT DATE: 201903
